FAERS Safety Report 11774420 (Version 3)
Quarter: 2016Q1

REPORT INFORMATION
  Report Type: Spontaneous
  Country: US (occurrence: US)
  Receive Date: 20151117
  Receipt Date: 20160120
  Transmission Date: 20160525
  Serious: No
  Sender: FDA-Public Use
  Company Number: US-PFIZER INC-2015378344

PATIENT
  Age: 72 Year
  Sex: Female

DRUGS (2)
  1. LYRICA [Suspect]
     Active Substance: PREGABALIN
     Indication: NEURALGIA
     Dosage: 150 MG, 2X/DAY
     Dates: start: 2012
  2. LYRICA [Suspect]
     Active Substance: PREGABALIN
     Indication: NERVE INJURY

REACTIONS (1)
  - Drug effect incomplete [Unknown]
